FAERS Safety Report 4364761-2 (Version None)
Quarter: 2004Q2

REPORT INFORMATION
  Report Type: 
  Country: None (occurrence: None)
  Receive Date: 20040513
  Receipt Date: 20040316
  Transmission Date: 20050107
  Serious: Yes (Hospitalization)
  Sender: FDA-Public Use
  Company Number: PHEH2004US02372

PATIENT
  Age: 42 Year
  Sex: Male
  Weight: 83.4 kg

DRUGS (6)
  1. DIOVAN [Suspect]
     Indication: HYPERTENSION
     Dosage: 80 MG, QD, ORAL
     Route: 048
     Dates: start: 20010101
  2. ZOCOR [Concomitant]
  3. NEXIUM [Concomitant]
  4. CLARINEX [Concomitant]
  5. NASACORT AQ (TRIAMCINOLONE ACETONIDE) [Concomitant]
  6. VIAGRA [Concomitant]

REACTIONS (4)
  - CHEST PAIN [None]
  - DIZZINESS [None]
  - HEADACHE [None]
  - PAIN IN EXTREMITY [None]
